FAERS Safety Report 15518792 (Version 1)
Quarter: 2018Q4

REPORT INFORMATION
  Report Type: Spontaneous
  Country: FR (occurrence: FR)
  Receive Date: 20181017
  Receipt Date: 20181017
  Transmission Date: 20190205
  Serious: Yes (Hospitalization)
  Sender: FDA-Public Use
  Company Number: FR-ROCHE-2201332

PATIENT
  Age: 50 Year
  Sex: Male
  Weight: 96 kg

DRUGS (10)
  1. LOXAPAC [Suspect]
     Active Substance: LOXAPINE
     Indication: CONDITION AGGRAVATED
     Route: 048
     Dates: start: 201808
  2. TRANSIPEG (MACROGOL) [Concomitant]
     Active Substance: POLYETHYLENE GLYCOLS
     Route: 065
  3. LASILIX [Concomitant]
     Active Substance: FUROSEMIDE
     Route: 065
  4. DIAZEPAM. [Suspect]
     Active Substance: DIAZEPAM
     Indication: CONDITION AGGRAVATED
     Route: 048
     Dates: start: 201808
  5. LACTULOSE. [Concomitant]
     Active Substance: LACTULOSE
     Route: 065
  6. QUETIAPINE. [Suspect]
     Active Substance: QUETIAPINE
     Indication: SCHIZOPHRENIA
     Route: 048
  7. BISOPROLOL [Concomitant]
     Active Substance: BISOPROLOL
     Route: 065
  8. PREVISCAN (FRANCE) [Concomitant]
     Active Substance: FLUINDIONE
     Route: 065
  9. ENTRESTO [Concomitant]
     Active Substance: SACUBITRIL\VALSARTAN
     Dosage: STRENGTH: 97MG/103 MG.
     Route: 065
  10. CRESTOR [Concomitant]
     Active Substance: ROSUVASTATIN CALCIUM
     Route: 065

REACTIONS (1)
  - Ischaemic stroke [Recovered/Resolved]

NARRATIVE: CASE EVENT DATE: 20180821
